FAERS Safety Report 9525737 (Version 1)
Quarter: 2013Q1

REPORT INFORMATION
  Report Type: Spontaneous
  Country: US (occurrence: None)
  Receive Date: 20130314
  Receipt Date: 20130314
  Transmission Date: 20140127
  Serious: No
  Sender: FDA-Public Use
  Company Number: 1212USA011167

PATIENT
  Age: 53 Year
  Sex: Female

DRUGS (7)
  1. VICTRELIS (BOCEPREVIR) CAPSULE, 200MG [Suspect]
     Indication: CHRONIC HEPATITIS C
     Route: 048
     Dates: start: 201208
  2. PEGASYS [Suspect]
  3. RIBASPHERE (RIBAVIRIN) [Suspect]
  4. SPRIVA (TIOTROPIUM BROMIDE) [Concomitant]
  5. CELEBREX (CELECOXIB) [Concomitant]
  6. ADAIR (FLUTICASONE PROPIONATE, SALMETEROL XINAFOATE) [Concomitant]
  7. ALBUTEROL [Concomitant]

REACTIONS (2)
  - Headache [None]
  - Fatigue [None]
